FAERS Safety Report 8573798-9 (Version None)
Quarter: 2012Q3

REPORT INFORMATION
  Report Type: 
  Country: None (occurrence: None)
  Receive Date: 20120806
  Receipt Date: 20120723
  Transmission Date: 20120928
  Serious: No
  Sender: FDA-Public Use
  Company Number: US-ASTRAZENECA-2012SE51721

PATIENT
  Age: 52 Year
  Sex: Female
  Weight: 68.9 kg

DRUGS (7)
  1. KLONOPIN [Concomitant]
  2. SEROQUEL [Suspect]
     Indication: SLEEP DISORDER
     Route: 048
  3. PHENERGAN HCL [Concomitant]
     Indication: NAUSEA
  4. CALCIUM [Concomitant]
  5. SEROQUEL [Suspect]
     Route: 048
  6. ASPIRIN [Concomitant]
     Indication: CEREBROVASCULAR ACCIDENT PROPHYLAXIS
  7. ATENOLOL [Concomitant]
     Indication: HYPERTENSION

REACTIONS (15)
  - THERAPEUTIC RESPONSE UNEXPECTED [None]
  - ARTHRITIS [None]
  - NAUSEA [None]
  - DRUG DOSE OMISSION [None]
  - DIARRHOEA [None]
  - INSOMNIA [None]
  - PAIN [None]
  - OSTEOPOROSIS [None]
  - DYSKINESIA [None]
  - DIVERTICULITIS [None]
  - GASTRIC DISORDER [None]
  - OFF LABEL USE [None]
  - INTERVERTEBRAL DISC DEGENERATION [None]
  - GASTROINTESTINAL DISORDER [None]
  - INTENTIONAL DRUG MISUSE [None]
